FAERS Safety Report 9409566 (Version 7)
Quarter: 2014Q4

REPORT INFORMATION
  Report Type: Report from Study
  Country: IL (occurrence: IL)
  Receive Date: 20130719
  Receipt Date: 20141126
  Transmission Date: 20150529
  Serious: Yes (Hospitalization)
  Sender: FDA-Public Use
  Company Number: PHHO2013IL009247

PATIENT
  Age: 51 Year
  Sex: Male
  Weight: 87.3 kg

DRUGS (7)
  1. ACZ885 [Suspect]
     Active Substance: CANAKINUMAB
     Indication: TYPE 2 DIABETES MELLITUS
     Dosage: 150 MG
     Route: 058
     Dates: start: 20121115
  2. LIPITOR [Concomitant]
     Active Substance: ATORVASTATIN CALCIUM
     Indication: HYPERLIPIDAEMIA
     Dosage: 80 MG, QD
     Route: 065
     Dates: start: 201205
  3. RECITAL [Concomitant]
     Indication: PANIC DISORDER
     Dosage: 20 MG, QD
     Route: 065
     Dates: start: 201205
  4. ASPIRIN. [Concomitant]
     Active Substance: ASPIRIN
     Indication: MYOCARDIAL ISCHAEMIA
     Dosage: 100 MG, QD
     Route: 065
     Dates: start: 201207
  5. SIMULECT [Concomitant]
     Active Substance: BASILIXIMAB
     Indication: DIABETES MELLITUS
     Dosage: 50/850MGX1
     Route: 065
  6. GLUCOPHAGE [Concomitant]
     Active Substance: METFORMIN HYDROCHLORIDE
     Indication: DIABETES MELLITUS
     Dosage: 850 MG, QD
     Route: 065
  7. NORMITEN [Concomitant]
     Active Substance: ATENOLOL
     Indication: MYOCARDIAL ISCHAEMIA
     Dosage: 12.5 MG, BID
     Route: 065
     Dates: start: 201208

REACTIONS (1)
  - Furuncle [Recovered/Resolved]

NARRATIVE: CASE EVENT DATE: 20130625
